FAERS Safety Report 16939632 (Version 1)
Quarter: 2019Q4

REPORT INFORMATION
  Report Type: Spontaneous
  Country: GB (occurrence: GB)
  Receive Date: 20191021
  Receipt Date: 20191021
  Transmission Date: 20200122
  Serious: Yes (Other)
  Sender: FDA-Public Use
  Company Number: GB-TEVA-2019-GB-1123120

PATIENT
  Age: 69 Year
  Sex: Male

DRUGS (1)
  1. ISOSORBIDE MONONITRATE. [Suspect]
     Active Substance: ISOSORBIDE MONONITRATE
     Dosage: 100 MILLIGRAM

REACTIONS (2)
  - Angina pectoris [Recovered/Resolved]
  - Product label issue [Unknown]
